FAERS Safety Report 15339991 (Version 1)
Quarter: 2018Q3

REPORT INFORMATION
  Report Type: Spontaneous
  Country: US (occurrence: US)
  Receive Date: 20180827
  Receipt Date: 20180827
  Transmission Date: 20181010
  Serious: No
  Sender: FDA-Public Use
  Company Number: None

PATIENT
  Sex: Female

DRUGS (1)
  1. ENBREL [Suspect]
     Active Substance: ETANERCEPT
     Route: 058

REACTIONS (9)
  - Decreased appetite [None]
  - Asthenia [None]
  - Fatigue [None]
  - Joint stiffness [None]
  - Nasopharyngitis [None]
  - Nausea [None]
  - Dry eye [None]
  - Peripheral swelling [None]
  - Headache [None]
